FAERS Safety Report 9752544 (Version 2)
Quarter: 2014Q1

REPORT INFORMATION
  Report Type: Spontaneous
  Country: US (occurrence: US)
  Receive Date: 20131213
  Receipt Date: 20140120
  Transmission Date: 20141002
  Serious: Yes (Death, Hospitalization)
  Sender: FDA-Public Use
  Company Number: US-JNJFOC-20131204766

PATIENT
  Sex: Female

DRUGS (21)
  1. REMICADE [Suspect]
     Indication: RHEUMATOID ARTHRITIS
     Route: 042
  2. REMICADE [Suspect]
     Indication: RHEUMATOID ARTHRITIS
     Route: 042
     Dates: end: 20131111
  3. IMURAN [Suspect]
     Indication: RHEUMATOID ARTHRITIS
     Route: 048
  4. MORPHINE [Suspect]
     Indication: SPINAL PAIN
     Route: 048
     Dates: start: 2013
  5. MORPHINE [Suspect]
     Indication: NECK PAIN
     Route: 048
     Dates: start: 2013
  6. MORPHINE [Suspect]
     Indication: SPINAL PAIN
     Route: 048
     Dates: start: 2013
  7. MORPHINE [Suspect]
     Indication: NECK PAIN
     Route: 048
     Dates: start: 2013
  8. FELODIPINE [Concomitant]
     Route: 048
  9. ATORVASTATIN [Concomitant]
     Route: 048
  10. LORAZEPAM [Concomitant]
     Route: 048
  11. ASPIRIN [Concomitant]
     Route: 048
  12. ENOXAPARIN [Concomitant]
     Route: 058
  13. TYLENOL [Concomitant]
     Route: 065
  14. PREVACID [Concomitant]
     Route: 048
  15. ALLEGRA [Concomitant]
     Route: 048
  16. BENAZEPRIL/HYDROCHLOROTHIAZIDE [Concomitant]
     Route: 048
  17. ZOLOFT [Concomitant]
     Route: 065
  18. CALCIUM [Concomitant]
     Indication: OSTEOPENIA
     Route: 065
  19. VITAMIN D [Concomitant]
     Indication: OSTEOPENIA
     Route: 065
  20. VICODIN [Concomitant]
     Route: 065
  21. OMEGA 3 [Concomitant]
     Route: 065

REACTIONS (10)
  - Lung adenocarcinoma metastatic [Fatal]
  - Deep vein thrombosis [Recovering/Resolving]
  - Intervertebral disc degeneration [Unknown]
  - Osteoarthritis [Unknown]
  - Fatigue [Unknown]
  - Rash pruritic [Unknown]
  - Swelling face [Unknown]
  - Lymphadenopathy [Unknown]
  - Arthralgia [Unknown]
  - Constipation [Unknown]
